FAERS Safety Report 4851105-2 (Version None)
Quarter: 2005Q4

REPORT INFORMATION
  Report Type: 
  Country: None (occurrence: None)
  Receive Date: 20051208
  Receipt Date: 20051124
  Transmission Date: 20060501
  Serious: Yes (Other)
  Sender: FDA-Public Use
  Company Number: CIP05002574

PATIENT
  Age: 60 Year
  Sex: Female

DRUGS (5)
  1. FURADANTIN [Suspect]
     Indication: URINARY TRACT INFECTION
     Dosage: SEE IMAGE
     Route: 048
     Dates: start: 20030108, end: 20030109
  2. FURADANTIN [Suspect]
     Indication: URINARY TRACT INFECTION
     Dosage: SEE IMAGE
     Route: 048
     Dates: start: 20051025, end: 20051027
  3. FURADANTIN [Suspect]
     Indication: URINARY TRACT INFECTION
     Dosage: SEE IMAGE
     Route: 048
     Dates: start: 20051027, end: 20051030
  4. FURADANTIN [Suspect]
     Indication: URINARY TRACT INFECTION
     Dosage: SEE IMAGE
     Route: 048
     Dates: start: 20020127
  5. VAXIGRIP (INFLUENZA VIRUS VACCINE POLVALENT) SOLUTION [Suspect]
     Indication: INFLUENZA IMMUNISATION
     Dosage: 1 DF ONCE ONLY, INTRAMUSCULAR
     Route: 030
     Dates: start: 20051029, end: 20051029

REACTIONS (7)
  - ABNORMAL FAECES [None]
  - COLITIS [None]
  - CONSTIPATION [None]
  - DIARRHOEA HAEMORRHAGIC [None]
  - FLATULENCE [None]
  - LARGE INTESTINAL HAEMORRHAGE [None]
  - PETECHIAE [None]
